FAERS Safety Report 20218255 (Version 1)
Quarter: 2021Q4

REPORT INFORMATION
  Report Type: Spontaneous
  Country: CN (occurrence: CN)
  Receive Date: 20211222
  Receipt Date: 20211222
  Transmission Date: 20220303
  Serious: Yes (Hospitalization)
  Sender: FDA-Public Use
  Company Number: CN-SA-SAC20211220000160

PATIENT
  Sex: Female

DRUGS (1)
  1. IRBESARTAN [Suspect]
     Active Substance: IRBESARTAN
     Indication: Hypertension
     Dosage: 1 DF, QD

REACTIONS (7)
  - Condition aggravated [Unknown]
  - Gastrooesophageal reflux disease [Unknown]
  - Hyperhidrosis [Recovered/Resolved]
  - Insomnia [Recovered/Resolved]
  - Gastrooesophageal sphincter insufficiency [Unknown]
  - Dyspepsia [Recovered/Resolved]
  - Heart rate increased [Recovered/Resolved]
